FAERS Safety Report 4660924-7 (Version None)
Quarter: 2005Q2

REPORT INFORMATION
  Report Type: 
  Country: None (occurrence: None)
  Receive Date: 20050511
  Receipt Date: 20050509
  Transmission Date: 20051028
  Serious: Yes (Other)
  Sender: FDA-Public Use
  Company Number: 004784

PATIENT
  Age: 75 Year
  Sex: Female
  Weight: 59 kg

DRUGS (4)
  1. AYGESTIN [Suspect]
     Indication: VASCULITIS
     Dosage: SEE IMAGE,ORAL
     Route: 048
     Dates: start: 19820101, end: 20040501
  2. AYGESTIN [Suspect]
     Indication: VASCULITIS
     Dosage: SEE IMAGE,ORAL
     Route: 048
     Dates: start: 20040710
  3. ACTONEL [Concomitant]
  4. VITAMINS [Concomitant]

REACTIONS (3)
  - BREAST CANCER FEMALE [None]
  - OFF LABEL USE [None]
  - TREATMENT NONCOMPLIANCE [None]
